FAERS Safety Report 7985732-0 (Version None)
Quarter: 2011Q4

REPORT INFORMATION
  Report Type: 
  Country: None (occurrence: None)
  Receive Date: 20111216
  Receipt Date: 20111216
  Transmission Date: 20120403
  Serious: Yes (Other)
  Sender: FDA-Public Use
  Company Number: None

PATIENT
  Sex: Male
  Weight: 113.39 kg

DRUGS (1)
  1. OMEPRAZOLE [Suspect]
     Indication: BARRETT'S OESOPHAGUS
     Dosage: ONE
     Route: 048
     Dates: start: 20080424, end: 20110314

REACTIONS (2)
  - BARRETT'S OESOPHAGUS [None]
  - DRUG INEFFECTIVE [None]
